FAERS Safety Report 4334215-8 (Version None)
Quarter: 2004Q2

REPORT INFORMATION
  Report Type: 
  Country: None (occurrence: None)
  Receive Date: 20040405
  Receipt Date: 20040325
  Transmission Date: 20050107
  Serious: Yes (Hospitalization)
  Sender: FDA-Public Use
  Company Number: US-JNJFOC-20040306524

PATIENT
  Age: 31 Year
  Sex: Female
  Weight: 117.9352 kg

DRUGS (4)
  1. DITROPAN [Suspect]
     Dosage: 5 MG, ORAL
     Route: 048
     Dates: start: 19980101
  2. NEXIUM [Concomitant]
  3. COUMADIN [Concomitant]
  4. ENBREL [Concomitant]

REACTIONS (1)
  - CEREBROVASCULAR ACCIDENT [None]
